FAERS Safety Report 8073190-X (Version None)
Quarter: 2012Q1

REPORT INFORMATION
  Report Type: 
  Country: None (occurrence: None)
  Receive Date: 20120126
  Receipt Date: 20120113
  Transmission Date: 20120608
  Serious: Yes (Other)
  Sender: FDA-Public Use
  Company Number: US-ELI_LILLY_AND_COMPANY-US201201004658

PATIENT
  Sex: Female

DRUGS (3)
  1. FORTEO [Suspect]
     Indication: OSTEOPOROSIS
     Dosage: 20 UG, QD
  2. FORTEO [Suspect]
     Dosage: 20 UG, QD
  3. CALCIUM [Concomitant]
     Dosage: 1200 MG, QD

REACTIONS (5)
  - HYDRONEPHROSIS [None]
  - DISCOMFORT [None]
  - HEART RATE INCREASED [None]
  - BONE DISORDER [None]
  - FATIGUE [None]
